FAERS Safety Report 6239061-6 (Version None)
Quarter: 2009Q2

REPORT INFORMATION
  Report Type: 
  Country: None (occurrence: None)
  Receive Date: 20090622
  Receipt Date: 20090612
  Transmission Date: 20091009
  Serious: Yes (Hospitalization, Other)
  Sender: FDA-Public Use
  Company Number: US-MERCK-0706USA00193

PATIENT
  Age: 81 Year
  Sex: Female

DRUGS (4)
  1. FOSAMAX [Suspect]
     Indication: OSTEOPOROSIS
     Route: 048
     Dates: start: 20001001
  2. FOSAMAX [Suspect]
     Route: 048
     Dates: start: 20030117, end: 20061128
  3. FOSAMAX PLUS D [Suspect]
     Indication: OSTEOPOROSIS
     Route: 048
     Dates: start: 20060606, end: 20070101
  4. NITROGLYCERIN [Concomitant]
     Route: 065

REACTIONS (21)
  - ANXIETY [None]
  - ASTHMA [None]
  - BLOOD CHOLESTEROL INCREASED [None]
  - CHEST PAIN [None]
  - DYSPHAGIA [None]
  - FACE INJURY [None]
  - FALL [None]
  - FATIGUE [None]
  - FEAR [None]
  - FEELING ABNORMAL [None]
  - FISTULA [None]
  - HYPERTENSION [None]
  - LIMB INJURY [None]
  - MALARIA [None]
  - NON-CARDIAC CHEST PAIN [None]
  - OSTEOMYELITIS [None]
  - OSTEONECROSIS [None]
  - RIB FRACTURE [None]
  - ROAD TRAFFIC ACCIDENT [None]
  - SEASONAL ALLERGY [None]
  - SPINAL FRACTURE [None]
